FAERS Safety Report 18424783 (Version 3)
Quarter: 2020Q4

REPORT INFORMATION
  Report Type: Report from Study
  Country: CA (occurrence: CA)
  Receive Date: 20201026
  Receipt Date: 20201122
  Transmission Date: 20210114
  Serious: Yes (Other)
  Sender: FDA-Public Use
  Company Number: CA-BIOGEN-2020BI00938795

PATIENT
  Sex: Female

DRUGS (1)
  1. TYSABRI [Suspect]
     Active Substance: NATALIZUMAB
     Indication: MULTIPLE SCLEROSIS
     Dosage: INFUSED FOR 1 HOUR
     Route: 042
     Dates: start: 20180111

REACTIONS (6)
  - Colitis ulcerative [Unknown]
  - Stress [Unknown]
  - Alopecia [Unknown]
  - Oligomenorrhoea [Unknown]
  - Fatigue [Unknown]
  - Haematochezia [Unknown]
